FAERS Safety Report 22012451 (Version 3)
Quarter: 2023Q2

REPORT INFORMATION
  Report Type: Spontaneous
  Country: US (occurrence: US)
  Receive Date: 20230220
  Receipt Date: 20230404
  Transmission Date: 20230722
  Serious: Yes (Other)
  Sender: FDA-Public Use
  Company Number: US-MEDEXUS PHARMA, INC.-2023MED00055

PATIENT
  Age: 29 Year
  Sex: Male
  Weight: 79.365 kg

DRUGS (7)
  1. IXINITY [Suspect]
     Active Substance: COAGULATION FACTOR IX RECOMBINANT HUMAN
     Indication: Haemarthrosis
     Dosage: 4235, ON EITHER ONE OF HIS HANDS FOR JOINT OR SOFT TISSUE BLEEDS
     Route: 042
  2. IXINITY [Suspect]
     Active Substance: COAGULATION FACTOR IX RECOMBINANT HUMAN
     Indication: Soft tissue haemorrhage
     Dosage: 8470, ON EITHER ONE OF HIS HANDS FOR SEVERE
     Route: 042
  3. IXINITY [Suspect]
     Active Substance: COAGULATION FACTOR IX RECOMBINANT HUMAN
     Indication: Haemorrhage
  4. IXINITY [Suspect]
     Active Substance: COAGULATION FACTOR IX RECOMBINANT HUMAN
     Indication: Epistaxis
  5. VITAMIN B1 [Concomitant]
     Active Substance: THIAMINE HYDROCHLORIDE
     Dosage: 100 MG, 1X/DAY
     Route: 048
  6. FOLVITE [Concomitant]
     Active Substance: FOLIC ACID
     Dosage: 1 MG, 1X/DAY
     Route: 048
  7. LIBRIUM [Concomitant]
     Active Substance: CHLORDIAZEPOXIDE HYDROCHLORIDE
     Dosage: 25 MG, AS NEEDED EVERY 4 HOURS

REACTIONS (7)
  - Syncope [Recovered/Resolved]
  - Epistaxis [Recovered/Resolved]
  - Drug ineffective [Recovered/Resolved]
  - Hypophagia [Unknown]
  - Tremor [Unknown]
  - Diarrhoea [Unknown]
  - Ecchymosis [Unknown]

NARRATIVE: CASE EVENT DATE: 20230201
